FAERS Safety Report 7224971-3 (Version None)
Quarter: 2011Q1

REPORT INFORMATION
  Report Type: 
  Country: None (occurrence: None)
  Receive Date: 20110113
  Receipt Date: 20110103
  Transmission Date: 20110831
  Serious: Yes (Hospitalization)
  Sender: FDA-Public Use
  Company Number: US-JNJCH-2011000560

PATIENT
  Age: 40 Year
  Sex: Female
  Weight: 99.8 kg

DRUGS (1)
  1. EXTRA STRENGTH ROLAIDS SOFTCHEWS WILD CHERRY [Suspect]
     Indication: FLATULENCE
     Dosage: TEXT:TWO SOFTCHEWS ONCE
     Route: 048
     Dates: start: 20101222, end: 20101222

REACTIONS (5)
  - PRODUCT QUALITY ISSUE [None]
  - EXPIRED DRUG ADMINISTERED [None]
  - DIARRHOEA [None]
  - VOMITING [None]
  - OFF LABEL USE [None]
